FAERS Safety Report 7467289-6 (Version None)
Quarter: 2011Q2

REPORT INFORMATION
  Report Type: 
  Country: None (occurrence: None)
  Receive Date: 20110509
  Receipt Date: 20110503
  Transmission Date: 20111010
  Serious: No
  Sender: FDA-Public Use
  Company Number: US-PFIZER INC-2011096905

PATIENT
  Sex: Female
  Weight: 173 kg

DRUGS (4)
  1. SULFASALAZINE [Concomitant]
     Indication: ARTHRITIS
     Dosage: 200 MG, 2X/DAY
     Route: 048
  2. PREDNISONE [Suspect]
     Indication: ARTHRITIS
     Dosage: 5 MG, DAILY
     Route: 048
  3. XANAX [Suspect]
     Indication: SLEEP DISORDER
     Dosage: UNK
     Route: 048
     Dates: start: 20110401
  4. TIKOSYN [Suspect]
     Indication: ATRIAL FIBRILLATION
     Dosage: UNK
     Dates: start: 20110301

REACTIONS (5)
  - NASOPHARYNGITIS [None]
  - NAUSEA [None]
  - MALAISE [None]
  - INSOMNIA [None]
  - FEELING ABNORMAL [None]
